FAERS Safety Report 8974301 (Version 1)
Quarter: 2012Q4

REPORT INFORMATION
  Report Type: Spontaneous
  Country: US (occurrence: None)
  Receive Date: 20121217
  Receipt Date: 20121217
  Transmission Date: 20130627
  Serious: Yes (Disabling)
  Sender: FDA-Public Use
  Company Number: None

PATIENT
  Age: 65 Year
  Sex: Male
  Weight: 115.67 kg

DRUGS (2)
  1. HUMALOG LISPRO [Suspect]
     Indication: DIABETES MELLITUS MANAGEMENT
     Dosage: 15U+SSI AM+Noon 20U PM PC Before Meals sq
     Route: 058
     Dates: start: 20120124, end: 20121106
  2. HUMALOG LISPRO [Suspect]
     Indication: DIABETES MELLITUS MANAGEMENT

REACTIONS (2)
  - Muscular weakness [None]
  - Gait disturbance [None]
